FAERS Safety Report 6646670-9 (Version None)
Quarter: 2010Q1

REPORT INFORMATION
  Report Type: 
  Country: None (occurrence: None)
  Receive Date: 20100323
  Receipt Date: 20100312
  Transmission Date: 20100710
  Serious: Yes (Other)
  Sender: FDA-Public Use
  Company Number: US-JNJFOC-20100304381

PATIENT

DRUGS (13)
  1. REMICADE [Suspect]
     Indication: DRUG EXPOSURE DURING PREGNANCY
     Dosage: ^500 SOMETHING^ EVERY 6 WEEKS
     Route: 064
  2. BIRTH CONTROL PILL [Suspect]
     Indication: CONTRACEPTION
  3. UNSPECIFIED BIRTH CONTROL [Suspect]
     Indication: CONTRACEPTION
  4. PREDNISONE [Concomitant]
  5. PENTASA [Concomitant]
  6. METOCLOPRAM [Concomitant]
  7. PROMETHAZINE [Concomitant]
  8. AZATHIOPRINE [Concomitant]
  9. FOLIC ACID [Concomitant]
  10. IRON [Concomitant]
  11. METRONIDAZOLE [Concomitant]
  12. PREVACID [Concomitant]
  13. CYANOCOBALAMIN [Concomitant]

REACTIONS (1)
  - PREMATURE BABY [None]
